FAERS Safety Report 25666401 (Version 1)
Quarter: 2025Q3

REPORT INFORMATION
  Report Type: Spontaneous
  Country: EU (occurrence: EU)
  Receive Date: 20250811
  Receipt Date: 20250811
  Transmission Date: 20251020
  Serious: Yes (Other)
  Sender: NOVARTIS
  Company Number: EU-002147023-NVSC2025DE126180

PATIENT
  Sex: Male

DRUGS (2)
  1. LETROZOLE [Suspect]
     Active Substance: LETROZOLE
     Indication: Testis cancer
     Route: 065
  2. TRABECTEDIN [Suspect]
     Active Substance: TRABECTEDIN
     Indication: Testis cancer
     Route: 065

REACTIONS (3)
  - Malignant neoplasm progression [Unknown]
  - Testis cancer [Unknown]
  - Off label use [Unknown]
